FAERS Safety Report 5087081-X (Version None)
Quarter: 2006Q3

REPORT INFORMATION
  Report Type: 
  Country: None (occurrence: None)
  Receive Date: 20060821
  Receipt Date: 20060807
  Transmission Date: 20061208
  Serious: Yes (Hospitalization)
  Sender: FDA-Public Use
  Company Number: 2006097961

PATIENT
  Age: 61 Year
  Sex: Male

DRUGS (2)
  1. PIROXICAM [Suspect]
     Indication: ARTHRALGIA
     Dosage: 20 MG 10 MG, 2 IN 1 D), ORAL
     Route: 048
     Dates: start: 20060511, end: 20060514
  2. PIROXICAM [Suspect]
     Indication: ARTHRITIS
     Dosage: 20 MG 10 MG, 2 IN 1 D), ORAL
     Route: 048
     Dates: start: 20060511, end: 20060514

REACTIONS (6)
  - ABDOMINAL TENDERNESS [None]
  - DYSPEPSIA [None]
  - DYSPNOEA [None]
  - HAEMOGLOBIN DECREASED [None]
  - LETHARGY [None]
  - MELAENA [None]
